FAERS Safety Report 5396039-2 (Version None)
Quarter: 2007Q3

REPORT INFORMATION
  Report Type: 
  Country: None (occurrence: None)
  Receive Date: 20070724
  Receipt Date: 20070713
  Transmission Date: 20080115
  Serious: Yes (Other)
  Sender: FDA-Public Use
  Company Number: US-PFIZER INC-2007058835

PATIENT
  Sex: Male
  Weight: 86.2 kg

DRUGS (9)
  1. LIPITOR [Suspect]
     Indication: BLOOD CHOLESTEROL INCREASED
     Dates: start: 19980101, end: 20070710
  2. LYRICA [Suspect]
     Indication: NEUROPATHY PERIPHERAL
     Dates: start: 20050101, end: 20070710
  3. NORVASC [Concomitant]
  4. CELEBREX [Concomitant]
  5. NEXIUM [Concomitant]
  6. DYAZIDE [Concomitant]
  7. POTASSIUM CHLORIDE [Concomitant]
  8. PROTEIN SUPPLEMENTS [Concomitant]
  9. GLUCOSAMINE [Concomitant]

REACTIONS (8)
  - BLOOD PRESSURE [None]
  - COLD SWEAT [None]
  - HEART RATE [None]
  - KNEE ARTHROPLASTY [None]
  - MUSCLE TWITCHING [None]
  - OVERDOSE [None]
  - SOMNOLENCE [None]
  - UNEVALUABLE EVENT [None]
